FAERS Safety Report 9531754 (Version 1)
Quarter: 2013Q3

REPORT INFORMATION
  Report Type: Spontaneous
  Country: US (occurrence: US)
  Receive Date: 20130918
  Receipt Date: 20130918
  Transmission Date: 20140515
  Serious: Yes (Hospitalization)
  Sender: FDA-Public Use
  Company Number: US-ASTRAZENECA-2013SE68858

PATIENT
  Sex: Male

DRUGS (2)
  1. BRILINTA [Suspect]
     Indication: ACUTE CORONARY SYNDROME
     Route: 048
     Dates: start: 2013
  2. UNSPECIFIED ANTIANXIETY MEDICATION [Concomitant]

REACTIONS (2)
  - Thrombosis in device [Not Recovered/Not Resolved]
  - Drug dose omission [Unknown]
